FAERS Safety Report 10004609 (Version 1)
Quarter: 2014Q1

REPORT INFORMATION
  Report Type: Spontaneous
  Country: US (occurrence: US)
  Receive Date: 20140312
  Receipt Date: 20140312
  Transmission Date: 20141002
  Serious: Yes (Other)
  Sender: FDA-Public Use
  Company Number: PHHY2014US026594

PATIENT
  Age: 53 Year
  Sex: Male

DRUGS (7)
  1. AMOXICILLIN+CLAVULANATE [Suspect]
     Indication: TOOTH ABSCESS
  2. WARFARIN [Suspect]
     Indication: ANTICOAGULANT THERAPY
     Dosage: 2 MG, ON MONDAY, WEDNESDAY AND FRIDAY
     Route: 048
  3. WARFARIN [Suspect]
     Dosage: 1 MG, ON REMAINING DAYS
  4. ALBUTEROL [Concomitant]
     Route: 055
  5. TRAZODONE [Concomitant]
     Dosage: 50 MG, AT BEDTIME
     Route: 048
  6. CHLORDIAZEPOXIDE [Concomitant]
     Dosage: 10 MG, 1 TO 3 TIMES A DAY
     Route: 048
  7. VICODIN ES [Concomitant]
     Indication: PAIN
     Dosage: 1 DF, PRN
     Route: 048

REACTIONS (5)
  - Haematuria [Unknown]
  - Haemorrhage [Recovered/Resolved]
  - Contusion [Unknown]
  - Toxicity to various agents [Unknown]
  - Drug interaction [Unknown]
